FAERS Safety Report 5596972-2 (Version None)
Quarter: 2008Q1

REPORT INFORMATION
  Report Type: 
  Country: None (occurrence: None)
  Receive Date: 20080121
  Receipt Date: 20071120
  Transmission Date: 20080703
  Serious: Yes (Death, Congenital Anomaly)
  Sender: FDA-Public Use
  Company Number: ES-NOVOPROD-269587

PATIENT

DRUGS (3)
  1. LEVEMIR [Suspect]
     Indication: DIABETES MELLITUS
     Dosage: 18 IU, QD
     Route: 064
     Dates: end: 20061129
  2. NOVORAPID [Concomitant]
     Dosage: 7 IU, QD
     Route: 064
  3. HUMALOG MIX 50 [Concomitant]
     Dosage: 8 IU, QD
     Route: 064
     Dates: end: 20061129

REACTIONS (1)
  - FOETAL MALFORMATION [None]
